FAERS Safety Report 16342886 (Version 1)
Quarter: 2019Q2

REPORT INFORMATION
  Report Type: Spontaneous
  Country: ES (occurrence: ES)
  Receive Date: 20190522
  Receipt Date: 20190522
  Transmission Date: 20190711
  Serious: Yes (Hospitalization)
  Sender: FDA-Public Use
  Company Number: ES-PFIZER INC-2019211336

PATIENT
  Age: 67 Year
  Sex: Female
  Weight: 86 kg

DRUGS (1)
  1. TIGECYCLINE. [Suspect]
     Active Substance: TIGECYCLINE
     Indication: PNEUMONIA ASPIRATION
     Dosage: 200 MG, 1X/DAY (EVERY 24 HOURS)
     Route: 042
     Dates: start: 20190102, end: 20190103

REACTIONS (1)
  - Hepatitis cholestatic [Recovered/Resolved]

NARRATIVE: CASE EVENT DATE: 20190103
